FAERS Safety Report 9930578 (Version 1)
Quarter: 2014Q1

REPORT INFORMATION
  Report Type: Spontaneous
  Country: US (occurrence: US)
  Receive Date: 20140227
  Receipt Date: 20140227
  Transmission Date: 20141002
  Serious: No
  Sender: FDA-Public Use
  Company Number: US-AMGEN-USASP2013089830

PATIENT
  Age: 58 Year
  Sex: Male
  Weight: 83.9 kg

DRUGS (2)
  1. ENBREL [Suspect]
     Indication: PRODUCT USED FOR UNKNOWN INDICATION
     Dosage: 50 MG/ML, QWK
     Route: 058
  2. ECHINACEA PURPUREA [Concomitant]
     Dosage: 350 MG, UNK

REACTIONS (1)
  - Sinusitis [Unknown]
